FAERS Safety Report 19935968 (Version 4)
Quarter: 2022Q1

REPORT INFORMATION
  Report Type: Report from Study
  Country: US (occurrence: None)
  Receive Date: 20211008
  Receipt Date: 20220316
  Transmission Date: 20220424
  Serious: Yes (Life-Threatening, Hospitalization, Other)
  Sender: FDA-Public Use
  Company Number: US-ROCHE-2717489

PATIENT
  Age: 70 Year
  Sex: Female
  Weight: 73 kg

DRUGS (37)
  1. PLACEBO [Suspect]
     Active Substance: UNSPECIFIED INGREDIENT
     Indication: Small cell lung cancer extensive stage
     Dosage: MOST RECENT DOSE PRIOR TO AE AND SAE ONSET ON 04/NOV/2020
     Route: 042
     Dates: start: 20201013
  2. ATEZOLIZUMAB [Suspect]
     Active Substance: ATEZOLIZUMAB
     Indication: Small cell lung cancer extensive stage
     Dosage: MOST RECENT DOSE ATEZOLIZUMAB (1200 MG) PRIOR TO AE AND SAE ONSET ON 04/NOV/2020
     Route: 041
     Dates: start: 20201013
  3. ETOPOSIDE [Suspect]
     Active Substance: ETOPOSIDE
     Indication: Small cell lung cancer extensive stage
     Dosage: MOST RECENT DOSE OF ETOPOSIDE (170 MG) PRIOR TO AE AND SAE ONSET ON 09/NOV/2020?ETOPOSIDE 100 MG/M^2
     Route: 042
     Dates: start: 20201013
  4. CARBOPLATIN [Suspect]
     Active Substance: CARBOPLATIN
     Indication: Small cell lung cancer extensive stage
     Dosage: MOST RECENT DOSE OF CARBOPLATIN (650 MG) PRIOR TO AE AND SAE ONSET ON 04/NOV/2020
     Route: 042
     Dates: start: 20201013
  5. LEVOTHYROXINE [Concomitant]
     Active Substance: LEVOTHYROXINE
     Indication: Hypothyroidism
     Route: 048
  6. QUETIAPINE FUMARATE [Concomitant]
     Active Substance: QUETIAPINE FUMARATE
     Indication: Depression
     Route: 048
  7. OXYBUTYNIN [Concomitant]
     Active Substance: OXYBUTYNIN
     Indication: Hypertonic bladder
     Route: 048
  8. OXYCODONE [Concomitant]
     Active Substance: OXYCODONE
     Indication: Pain
     Route: 048
  9. VITAMIN D2 [Concomitant]
     Active Substance: ERGOCALCIFEROL
     Indication: Vitamin D deficiency
     Route: 048
  10. ALPRAZOLAM [Concomitant]
     Active Substance: ALPRAZOLAM
     Indication: Premedication
     Route: 048
  11. ONDANSETRON [Concomitant]
     Active Substance: ONDANSETRON
     Indication: Nausea
     Route: 048
     Dates: start: 20201013
  12. LIDOCAINE;PRILOCAINE [Concomitant]
     Indication: Prophylaxis
     Dosage: MEDIPORT ACCESS
     Route: 061
     Dates: start: 20201013
  13. CLARITIN [Concomitant]
     Active Substance: LORATADINE
     Indication: Hypersensitivity
     Route: 048
     Dates: start: 20201015
  14. APREPITANT [Concomitant]
     Active Substance: APREPITANT
     Indication: Chemotherapy
     Route: 042
     Dates: start: 20201104, end: 20201104
  15. APREPITANT [Concomitant]
     Active Substance: APREPITANT
     Route: 042
     Dates: start: 20201013, end: 20201013
  16. DEXAMETHASONE [Concomitant]
     Active Substance: DEXAMETHASONE
     Indication: Chemotherapy
     Route: 042
     Dates: start: 20201104, end: 20201104
  17. DEXAMETHASONE [Concomitant]
     Active Substance: DEXAMETHASONE
     Route: 042
     Dates: start: 20201109, end: 20201109
  18. DEXAMETHASONE [Concomitant]
     Active Substance: DEXAMETHASONE
     Route: 042
     Dates: start: 20201013, end: 20201015
  19. PALONOSETRON [Concomitant]
     Active Substance: PALONOSETRON
     Indication: Chemotherapy
     Route: 042
     Dates: start: 20201104, end: 20201104
  20. PALONOSETRON [Concomitant]
     Active Substance: PALONOSETRON
     Route: 042
     Dates: start: 20201013, end: 20201013
  21. PEGFILGRASTIM [Concomitant]
     Active Substance: PEGFILGRASTIM
     Indication: Febrile neutropenia
     Route: 058
     Dates: start: 20201110, end: 20201110
  22. PEGFILGRASTIM [Concomitant]
     Active Substance: PEGFILGRASTIM
     Route: 058
     Dates: start: 20201016, end: 20201016
  23. INFLUENZA VIRUS VACCINE [Concomitant]
     Active Substance: INFLUENZA VIRUS VACCINE
     Indication: Antiviral prophylaxis
     Route: 030
     Dates: start: 20201016, end: 20201016
  24. KEPPRA [Concomitant]
     Active Substance: LEVETIRACETAM
     Indication: Seizure prophylaxis
     Route: 048
  25. PANTOPRAZOLE [Concomitant]
     Active Substance: PANTOPRAZOLE
     Indication: Gastrooesophageal reflux disease
     Route: 048
  26. XANAX [Concomitant]
     Active Substance: ALPRAZOLAM
     Indication: Anxiety
     Route: 048
     Dates: start: 20201210
  27. LORAZEPAM [Concomitant]
     Active Substance: LORAZEPAM
     Indication: Anxiety
     Route: 048
     Dates: start: 20201210
  28. LORAZEPAM [Concomitant]
     Active Substance: LORAZEPAM
     Indication: Agitation
  29. LORAZEPAM [Concomitant]
     Active Substance: LORAZEPAM
     Indication: Somnolence
  30. BUPROPION [Concomitant]
     Active Substance: BUPROPION
     Indication: Ex-tobacco user
     Route: 048
  31. ATROPINE\DIPHENOXYLATE [Concomitant]
     Active Substance: ATROPINE\DIPHENOXYLATE
     Route: 048
  32. FUROSEMIDE [Concomitant]
     Active Substance: FUROSEMIDE
     Indication: Fluid retention
     Route: 048
  33. MORPHINE [Concomitant]
     Active Substance: MORPHINE
     Indication: Pain
     Route: 048
     Dates: start: 20201210
  34. MORPHINE [Concomitant]
     Active Substance: MORPHINE
     Indication: Dyspnoea
  35. ATROPINE [Concomitant]
     Active Substance: ATROPINE
     Route: 048
     Dates: start: 20201210
  36. CASPOFUNGIN [Concomitant]
     Active Substance: CASPOFUNGIN
     Indication: Fungaemia
     Route: 042
     Dates: start: 20201207, end: 20201210
  37. VITAMIN B12 [Concomitant]
     Active Substance: CYANOCOBALAMIN
     Route: 030

REACTIONS (4)
  - Platelet count decreased [Recovered/Resolved]
  - Fall [Unknown]
  - COVID-19 [Not Recovered/Not Resolved]
  - Pneumonia [Recovered/Resolved]

NARRATIVE: CASE EVENT DATE: 20201110
